FAERS Safety Report 11366045 (Version 1)
Quarter: 2015Q3

REPORT INFORMATION
  Report Type: Spontaneous
  Country: GB (occurrence: GB)
  Receive Date: 20150811
  Receipt Date: 20150811
  Transmission Date: 20151125
  Serious: Yes (Hospitalization)
  Sender: FDA-Public Use
  Company Number: PHHY2015GB092463

PATIENT
  Age: 63 Year
  Sex: Male
  Weight: 85.72 kg

DRUGS (1)
  1. LORATADINE. [Suspect]
     Active Substance: LORATADINE
     Indication: TINNITUS
     Dosage: 10 MG
     Route: 048
     Dates: start: 20140922, end: 20140929

REACTIONS (3)
  - Drug ineffective [Unknown]
  - Lipoma [Unknown]
  - Back pain [Unknown]

NARRATIVE: CASE EVENT DATE: 20140928
